FAERS Safety Report 14479884 (Version 1)
Quarter: 2018Q1

REPORT INFORMATION
  Report Type: Spontaneous
  Country: US (occurrence: US)
  Receive Date: 20180202
  Receipt Date: 20180202
  Transmission Date: 20180509
  Serious: Yes (Hospitalization)
  Sender: FDA-Public Use
  Company Number: US-UNITED THERAPEUTICS-UNT-2018-001297

PATIENT
  Sex: Female

DRUGS (1)
  1. REMODULIN [Suspect]
     Active Substance: TREPROSTINIL
     Indication: PULMONARY ARTERIAL HYPERTENSION
     Dosage: 0.080 ?G/KG, CONTINUING
     Route: 058
     Dates: start: 20140722

REACTIONS (4)
  - Peripheral swelling [Recovering/Resolving]
  - Hypotension [Unknown]
  - Flushing [Not Recovered/Not Resolved]
  - Infusion site infection [Unknown]

NARRATIVE: CASE EVENT DATE: 201801
